FAERS Safety Report 7772746-9 (Version None)
Quarter: 2011Q3

REPORT INFORMATION
  Report Type: 
  Country: None (occurrence: None)
  Receive Date: 20110922
  Receipt Date: 20110301
  Transmission Date: 20111222
  Serious: No
  Sender: FDA-Public Use
  Company Number: US-ASTRAZENECA-2011SE11176

PATIENT
  Age: 39 Year
  Sex: Female
  Weight: 98.9 kg

DRUGS (3)
  1. MANIDIPINE [Concomitant]
     Indication: DEPRESSION
  2. SEROQUEL XR [Suspect]
     Route: 048
  3. HYDROCHLOROTHIAZIDE [Concomitant]
     Indication: HYPERTENSION

REACTIONS (3)
  - BLOOD CHOLESTEROL INCREASED [None]
  - WEIGHT INCREASED [None]
  - BEDRIDDEN [None]
